FAERS Safety Report 13026988 (Version 2)
Quarter: 2016Q4

REPORT INFORMATION
  Report Type: Report from Study
  Country: US (occurrence: US)
  Receive Date: 20161214
  Receipt Date: 20161228
  Transmission Date: 20170207
  Serious: No
  Sender: FDA-Public Use
  Company Number: US-TEVA-720514USA

PATIENT
  Age: 50 Year
  Sex: Female

DRUGS (1)
  1. CLARAVIS [Suspect]
     Active Substance: ISOTRETINOIN
     Dosage: 60 MILLIGRAM DAILY;
     Dates: start: 20160802, end: 20161205

REACTIONS (1)
  - Pregnancy test false positive [Unknown]

NARRATIVE: CASE EVENT DATE: 20161214
